FAERS Safety Report 18895849 (Version 1)
Quarter: 2021Q1

REPORT INFORMATION
  Report Type: Spontaneous
  Country: DE (occurrence: DE)
  Receive Date: 20210216
  Receipt Date: 20210216
  Transmission Date: 20210420
  Serious: No
  Sender: FDA-Public Use
  Company Number: DE-ALKEM LABORATORIES LIMITED-DE-ALKEM-2020-07789

PATIENT
  Age: 54 Year
  Sex: Female

DRUGS (9)
  1. CARBIDOPA 25 MG, ENTACAPONE 200 MG, LEVODOPA 100 MG [Interacting]
     Active Substance: CARBIDOPA\ENTACAPONE\LEVODOPA
     Indication: PARKINSON^S DISEASE
     Dosage: 4 DOSAGE FORM, QD, (EVERY 1 DAY)
     Route: 065
  2. ISICOM 100/25 MG [Interacting]
     Active Substance: CARBIDOPA\LEVODOPA
     Indication: PARKINSON^S DISEASE
     Dosage: 1 DOSAGE FORM, QD, (EVERY 1 DAY)
     Route: 065
  3. MADOPAR LT 100 MG/25 MG [Interacting]
     Active Substance: BENSERAZIDE HYDROCHLORIDE\LEVODOPA
     Indication: PARKINSON^S DISEASE
     Dosage: 1 DOSAGE FORM, QD, (EVERY 1 DAY)
     Route: 065
  4. SISARE GEL [Interacting]
     Active Substance: ESTRADIOL VALERATE\MEDROXYPROGESTERONE ACETATE
     Indication: HOT FLUSH
     Dosage: UNK
     Route: 065
     Dates: start: 201909, end: 201909
  5. PREGABALIN. [Suspect]
     Active Substance: PREGABALIN
     Indication: PARKINSON^S DISEASE
     Dosage: 100 MILLIGRAM, QD, (EVERY 1 DAY)
     Route: 065
  6. AMANTADINE. [Interacting]
     Active Substance: AMANTADINE HYDROCHLORIDE
     Indication: PARKINSON^S DISEASE
     Dosage: 2 DOSAGE FORM, QD, (EVERY 1 DAY)
     Route: 065
  7. CLARIUM [PIRIBEDIL] [Interacting]
     Active Substance: PIRIBEDIL
     Indication: PARKINSON^S DISEASE
     Dosage: 150 MILLIGRAM, QD, (EVERY 1 DAY)
     Route: 065
  8. NEUPRO [Interacting]
     Active Substance: ROTIGOTINE
     Indication: PARKINSON^S DISEASE
     Dosage: UNK
     Route: 062
  9. XADAGO [Interacting]
     Active Substance: SAFINAMIDE MESYLATE
     Indication: PARKINSON^S DISEASE
     Dosage: 50 MILLIGRAM, QD, (EVERY 1 DAY)
     Route: 065

REACTIONS (3)
  - Drug interaction [Unknown]
  - Musculoskeletal stiffness [Recovering/Resolving]
  - Gait disturbance [Recovering/Resolving]

NARRATIVE: CASE EVENT DATE: 201909
